FAERS Safety Report 15524826 (Version 3)
Quarter: 2018Q4

REPORT INFORMATION
  Report Type: Report from Study
  Country: US (occurrence: US)
  Receive Date: 20181019
  Receipt Date: 20181203
  Transmission Date: 20190205
  Serious: Yes (Hospitalization)
  Sender: FDA-Public Use
  Company Number: PHHO2018US009617

PATIENT
  Age: 56 Year
  Sex: Female
  Weight: 78.8 kg

DRUGS (3)
  1. DOXORUBICIN [Suspect]
     Active Substance: DOXORUBICIN
     Indication: ANGIOSARCOMA
     Dosage: UNK
     Route: 042
     Dates: start: 201805, end: 20180814
  2. KISQALI [Suspect]
     Active Substance: RIBOCICLIB
     Indication: ANGIOSARCOMA
     Dosage: 400MG ON DAYS 1-7 OF 21 DAY CYCLE
     Route: 048
     Dates: start: 20180501, end: 20180829
  3. DEXRAZOXANE. [Concomitant]
     Active Substance: DEXRAZOXANE
     Indication: EJECTION FRACTION
     Dosage: UNK
     Route: 065

REACTIONS (4)
  - Syncope [Recovered/Resolved]
  - Troponin increased [Recovered/Resolved]
  - Acute left ventricular failure [Not Recovered/Not Resolved]
  - Hypotension [Recovered/Resolved]

NARRATIVE: CASE EVENT DATE: 20180818
